FAERS Safety Report 14088623 (Version 1)
Quarter: 2017Q4

REPORT INFORMATION
  Report Type: Spontaneous
  Country: US (occurrence: US)
  Receive Date: 20171013
  Receipt Date: 20171013
  Transmission Date: 20180321
  Serious: Yes (Death)
  Sender: FDA-Public Use
  Company Number: US-TAKEDA-2017TUS021375

PATIENT
  Age: 21 Year
  Sex: Female

DRUGS (2)
  1. COLCHICINE. [Suspect]
     Active Substance: COLCHICINE
     Indication: FAMILIAL MEDITERRANEAN FEVER
     Dosage: 1 MG, Q8HR
     Route: 042
  2. COLCHICINE. [Suspect]
     Active Substance: COLCHICINE
     Dosage: 11 MG, UNK
     Route: 041

REACTIONS (3)
  - Incorrect route of drug administration [Unknown]
  - Toxicity to various agents [Fatal]
  - Overdose [Unknown]
